FAERS Safety Report 8100668-2 (Version None)
Quarter: 2012Q1

REPORT INFORMATION
  Report Type: 
  Country: None (occurrence: None)
  Receive Date: 20120129
  Receipt Date: 20111121
  Transmission Date: 20120608
  Serious: No
  Sender: FDA-Public Use
  Company Number: US-ABBOTT-11P-163-0699538-00

PATIENT
  Sex: Male
  Weight: 102.15 kg

DRUGS (4)
  1. HUMIRA [Suspect]
     Indication: ANKYLOSING SPONDYLITIS
     Route: 058
     Dates: start: 20101201
  2. CELEBREX [Concomitant]
     Indication: ANKYLOSING SPONDYLITIS
  3. TRAMADOL HCL [Concomitant]
     Indication: ANKYLOSING SPONDYLITIS
  4. UNKNOWN MUSCLE RELAXERS [Concomitant]
     Indication: ANKYLOSING SPONDYLITIS

REACTIONS (5)
  - NECK PAIN [None]
  - DEVICE MALFUNCTION [None]
  - LIQUID PRODUCT PHYSICAL ISSUE [None]
  - PAIN [None]
  - BACK PAIN [None]
